FAERS Safety Report 5553648-5 (Version None)
Quarter: 2007Q4

REPORT INFORMATION
  Report Type: 
  Country: None (occurrence: None)
  Receive Date: 20071130
  Receipt Date: 20070827
  Transmission Date: 20080405
  Serious: Yes (Other)
  Sender: FDA-Public Use
  Company Number: US200708003339

PATIENT
  Age: 44 Year
  Sex: Female

DRUGS (6)
  1. BYETTA [Suspect]
     Indication: TYPE 2 DIABETES MELLITUS
     Dosage: 5 UG, 2/D, SUBCUTANEOUS
     Route: 058
     Dates: start: 20070723, end: 20070815
  2. .. [Concomitant]
  3. METFORMIN HCL [Concomitant]
  4. LOTREL [Concomitant]
  5. FERROUS GLUCONATE (FERROUS GLUCONATE) [Concomitant]
  6. ZYRTEC [Concomitant]

REACTIONS (4)
  - ANGIOEDEMA [None]
  - DIARRHOEA [None]
  - MIGRAINE [None]
  - NAUSEA [None]
